FAERS Safety Report 5931463-8 (Version None)
Quarter: 2008Q4

REPORT INFORMATION
  Report Type: 
  Country: None (occurrence: None)
  Receive Date: 20081024
  Receipt Date: 20081024
  Transmission Date: 20090506
  Serious: No
  Sender: FDA-Public Use
  Company Number: None

PATIENT
  Age: 72 Year
  Sex: Female
  Weight: 79.3795 kg

DRUGS (1)
  1. TIZANIDINE HCL [Suspect]
     Indication: MUSCLE SPASMS
     Dosage: 1TAB AS NEEDED PO
     Route: 048
     Dates: start: 20081002, end: 20081004

REACTIONS (5)
  - DYSSTASIA [None]
  - FALL [None]
  - MOVEMENT DISORDER [None]
  - MUSCLE SPASMS [None]
  - SKIN LACERATION [None]
